FAERS Safety Report 26184840 (Version 1)
Quarter: 2025Q4

REPORT INFORMATION
  Report Type: Spontaneous
  Country: CN (occurrence: CN)
  Receive Date: 20251222
  Receipt Date: 20251222
  Transmission Date: 20260118
  Serious: Yes (Other)
  Sender: GE HEALTHCARE
  Company Number: None

PATIENT
  Age: 52 Year
  Sex: Male
  Weight: 75 kg

DRUGS (2)
  1. VISIPAQUE [Suspect]
     Active Substance: IODIXANOL
     Indication: Angiocardiogram
     Dosage: 64 GM, TOTAL
     Route: 013
     Dates: start: 20251204, end: 20251204
  2. VISIPAQUE [Suspect]
     Active Substance: IODIXANOL
     Indication: Arteriogram renal

REACTIONS (10)
  - Pallor [Recovering/Resolving]
  - Blood pressure decreased [Recovering/Resolving]
  - Heart rate decreased [Recovering/Resolving]
  - Asthenia [Recovering/Resolving]
  - Dizziness [Recovering/Resolving]
  - Hyperhidrosis [Recovering/Resolving]
  - Abdominal pain [Recovering/Resolving]
  - Rash erythematous [Recovering/Resolving]
  - Presyncope [Recovering/Resolving]
  - Contrast media allergy [Recovering/Resolving]

NARRATIVE: CASE EVENT DATE: 20251204
